FAERS Safety Report 18893485 (Version 1)
Quarter: 2021Q1

REPORT INFORMATION
  Report Type: Spontaneous
  Country: FR (occurrence: FR)
  Receive Date: 20210215
  Receipt Date: 20210215
  Transmission Date: 20210420
  Serious: Yes (Other)
  Sender: FDA-Public Use
  Company Number: ALC2021FR001074

PATIENT

DRUGS (3)
  1. ATROPINE. [Suspect]
     Active Substance: ATROPINE
     Indication: SALIVARY HYPERSECRETION
     Dosage: 0.5 MG, TID
     Route: 060
  2. SCOPOLAMINE [HYOSCINE] [Suspect]
     Active Substance: SCOPOLAMINE
     Indication: PNEUMONIA ASPIRATION
     Dosage: 1 MG, Q72H
     Route: 062
  3. ATROPINE. [Suspect]
     Active Substance: ATROPINE
     Dosage: 0.5 MG, BID
     Route: 060

REACTIONS (6)
  - Mydriasis [Recovered/Resolved]
  - Overdose [Unknown]
  - Off label use [Unknown]
  - Toxicity to various agents [Unknown]
  - Urinary retention [Unknown]
  - Incorrect route of product administration [Unknown]
